FAERS Safety Report 13964221 (Version 2)
Quarter: 2017Q4

REPORT INFORMATION
  Report Type: Spontaneous
  Country: JP (occurrence: JP)
  Receive Date: 20170913
  Receipt Date: 20171219
  Transmission Date: 20180320
  Serious: Yes (Other)
  Sender: FDA-Public Use
  Company Number: JP-CELGENEUS-JPN-20170900723

PATIENT
  Age: 78 Year
  Sex: Female
  Weight: 52 kg

DRUGS (3)
  1. OTEZLA [Suspect]
     Active Substance: APREMILAST
     Indication: PSORIASIS
     Dosage: 60 MILLIGRAM
     Route: 048
     Dates: start: 20170427, end: 20170620
  2. STEROID HORMONES [Concomitant]
     Indication: PSORIASIS
     Route: 062
     Dates: start: 20130913, end: 201705
  3. STEROID HORMONES AND VITAMIN D3 MEDICAL COMPOUND [Concomitant]
     Indication: PSORIASIS
     Route: 062
     Dates: start: 20150413, end: 201705

REACTIONS (1)
  - Dementia [Unknown]

NARRATIVE: CASE EVENT DATE: 20170622
